FAERS Safety Report 9583681 (Version 1)
Quarter: 2013Q4

REPORT INFORMATION
  Report Type: Spontaneous
  Country: US (occurrence: US)
  Receive Date: 20131002
  Receipt Date: 20131002
  Transmission Date: 20140711
  Serious: No
  Sender: FDA-Public Use
  Company Number: US-AMGEN-USASP2013048753

PATIENT
  Age: 61 Year
  Sex: Female
  Weight: 72.56 kg

DRUGS (3)
  1. ENBREL [Suspect]
     Indication: PRODUCT USED FOR UNKNOWN INDICATION
     Dosage: 50 MG, EVERY WEEK
     Route: 058
     Dates: start: 2001, end: 201305
  2. HUMIRA [Concomitant]
     Dosage: 40 MG/0.8, UNK
     Dates: start: 2003
  3. ENDOCET [Concomitant]
     Dosage: 7.5-325,UNK

REACTIONS (2)
  - Drug ineffective [Unknown]
  - Psoriasis [Unknown]
